FAERS Safety Report 13240637 (Version 1)
Quarter: 2017Q1

REPORT INFORMATION
  Report Type: Spontaneous
  Country: US (occurrence: US)
  Receive Date: 20170216
  Receipt Date: 20170216
  Transmission Date: 20170428
  Serious: No
  Sender: FDA-Public Use
  Company Number: US-RELYPSA-RLY2016004070

PATIENT
  Age: 70 Year
  Sex: Male

DRUGS (7)
  1. VELTASSA [Suspect]
     Active Substance: PATIROMER
     Indication: HYPERKALAEMIA
     Dosage: 8.4 G, QD
     Route: 048
     Dates: start: 20160825, end: 201611
  2. RAMIPRIL. [Concomitant]
     Active Substance: RAMIPRIL
  3. SIROLIMUS. [Concomitant]
     Active Substance: SIROLIMUS
  4. TAMSULOSIN [Concomitant]
     Active Substance: TAMSULOSIN
  5. TESTOSTERONE. [Concomitant]
     Active Substance: TESTOSTERONE
  6. MAGNESIUM OXIDE. [Concomitant]
     Active Substance: MAGNESIUM OXIDE
  7. ESOMEPRAZOLE [Concomitant]
     Active Substance: ESOMEPRAZOLE

REACTIONS (1)
  - Drug interaction [Recovered/Resolved]

NARRATIVE: CASE EVENT DATE: 20161128
